FAERS Safety Report 12240740 (Version 3)
Quarter: 2016Q2

REPORT INFORMATION
  Report Type: Report from Study
  Country: DE (occurrence: DE)
  Receive Date: 20160406
  Receipt Date: 20160419
  Transmission Date: 20160815
  Serious: Yes (Hospitalization)
  Sender: FDA-Public Use
  Company Number: DE-ROCHE-1731349

PATIENT
  Age: 70 Year
  Sex: Male
  Weight: 59 kg

DRUGS (21)
  1. PACLITAXEL. [Suspect]
     Active Substance: PACLITAXEL
     Indication: NON-SMALL CELL LUNG CANCER
     Dosage: MOST RECENT DOSE (338 MG) ADMINISTERED ON 25/FEB/2016, PRIOR TO THE EVENT
     Route: 042
     Dates: start: 20160225
  2. INSULIN [Concomitant]
     Active Substance: INSULIN NOS
     Indication: HYPERGLYCAEMIA
     Route: 065
     Dates: start: 20160227, end: 20160227
  3. SULTANOL [Concomitant]
     Active Substance: ALBUTEROL SULFATE
     Indication: DYSPNOEA
     Route: 065
     Dates: start: 20160321, end: 20160324
  4. TAVEGIL [Concomitant]
     Active Substance: CLEMASTINE FUMARATE
     Indication: INFUSION RELATED REACTION
     Route: 065
     Dates: start: 20160412, end: 20160412
  5. CARBOPLATIN. [Suspect]
     Active Substance: CARBOPLATIN
     Indication: NON-SMALL CELL LUNG CANCER
     Dosage: TARGET AUC = 6 MG/ML/MIN?MOST RECENT DOSE (608 MG) ADMINISTERED ON 25/FEB/2016, PRIOR TO THE EVENT
     Route: 042
     Dates: start: 20160225
  6. METFORMIN [Concomitant]
     Active Substance: METFORMIN HYDROCHLORIDE
     Indication: TYPE 2 DIABETES MELLITUS
     Route: 065
     Dates: start: 20160226, end: 20160301
  7. RANITIDIN [Concomitant]
     Active Substance: RANITIDINE HYDROCHLORIDE
     Indication: INFUSION RELATED REACTION
     Route: 065
     Dates: start: 20160412, end: 20160412
  8. PACKED ERYTHROCYTES TRANSFUSION [Concomitant]
     Route: 065
     Dates: start: 20160323, end: 20160323
  9. RINGER SOLUTION [Concomitant]
     Indication: DEHYDRATION
     Route: 065
     Dates: start: 20160323, end: 20160324
  10. BEVACIZUMAB [Suspect]
     Active Substance: BEVACIZUMAB
     Indication: NON-SMALL CELL LUNG CANCER
     Dosage: MOST RECENT DOSE (930 MG) ADMINISTERED ON 25/FEB/2016, PRIOR TO THE EVENT
     Route: 042
     Dates: start: 20160225
  11. PACKED ERYTHROCYTES TRANSFUSION [Concomitant]
     Indication: ANAEMIA
     Route: 065
     Dates: start: 20160314, end: 20160321
  12. METRONIDAZOL [Concomitant]
     Active Substance: METRONIDAZOLE
     Route: 065
     Dates: start: 20160324, end: 20160402
  13. ONDANSETRON [Concomitant]
     Active Substance: ONDANSETRON
     Indication: PROPHYLAXIS OF NAUSEA AND VOMITING
     Route: 065
     Dates: start: 20160225, end: 20160225
  14. METFORMIN [Concomitant]
     Active Substance: METFORMIN HYDROCHLORIDE
     Route: 065
     Dates: start: 20160330
  15. AMOXCLAV [Concomitant]
     Indication: C-REACTIVE PROTEIN INCREASED
     Route: 065
     Dates: start: 20160314, end: 20160321
  16. RANITIDIN [Concomitant]
     Active Substance: RANITIDINE HYDROCHLORIDE
     Route: 065
     Dates: start: 20160225, end: 20160225
  17. CLEMASTIN [Concomitant]
     Active Substance: CLEMASTINE
     Route: 065
     Dates: start: 20160225, end: 20160225
  18. INSULIN [Concomitant]
     Active Substance: INSULIN NOS
     Route: 065
     Dates: start: 201603
  19. ZOPICLON [Concomitant]
     Active Substance: ZOPICLONE
     Indication: INSOMNIA
     Route: 065
     Dates: start: 20160225
  20. CLARITHROMYCIN. [Concomitant]
     Active Substance: CLARITHROMYCIN
     Route: 065
     Dates: start: 20160324, end: 20160402
  21. ATEZOLIZUMAB [Suspect]
     Active Substance: ATEZOLIZUMAB
     Indication: NON-SMALL CELL LUNG CANCER
     Dosage: MOST RECENT DOSE ADMINISTERED ON 25/FEB/2016, PRIOR TO THE EVENT
     Route: 042
     Dates: start: 20160225

REACTIONS (1)
  - Duodenal ulcer [Not Recovered/Not Resolved]

NARRATIVE: CASE EVENT DATE: 20160322
